FAERS Safety Report 7950594-4 (Version None)
Quarter: 2011Q4

REPORT INFORMATION
  Report Type: 
  Country: None (occurrence: None)
  Receive Date: 20111130
  Receipt Date: 20111124
  Transmission Date: 20120403
  Serious: Yes (Hospitalization, Other)
  Sender: FDA-Public Use
  Company Number: DE-ABBOTT-11P-062-0708889-00

PATIENT
  Sex: Female
  Weight: 91 kg

DRUGS (10)
  1. SULFASALAZINE [Concomitant]
     Indication: RHEUMATOID ARTHRITIS
     Dosage: 3000 MG DAILY
  2. VITAMIN D [Concomitant]
     Indication: OSTEOPOROSIS
  3. HUMIRA [Suspect]
     Indication: RHEUMATOID ARTHRITIS
     Route: 058
     Dates: start: 20101028, end: 20110121
  4. PREDNISOLONE [Concomitant]
     Indication: RHEUMATOID ARTHRITIS
     Dosage: 10 MG DAILY
  5. BISOPROLOL FUMARATE [Concomitant]
     Indication: HYPERTENSION
     Dosage: 5 MG DAILY
  6. HUMIRA [Suspect]
     Route: 058
     Dates: start: 20110201, end: 20110316
  7. ANALGETIC DRUG [Concomitant]
     Indication: RHEUMATOID ARTHRITIS
  8. CORTISONE ACETATE [Concomitant]
     Indication: RHEUMATOID ARTHRITIS
     Dates: start: 20110407
  9. HUMIRA [Suspect]
     Dates: start: 20110417
  10. BONIVA [Concomitant]
     Indication: OSTEOPOROSIS
     Dosage: 3MG PER 3 MONTHS
     Dates: end: 20110101

REACTIONS (5)
  - ELECTIVE SURGERY [None]
  - VIRAL INFECTION [None]
  - EYELID OEDEMA [None]
  - PARANASAL CYST [None]
  - HEADACHE [None]
